FAERS Safety Report 9333131 (Version 2)
Quarter: 2013Q2

REPORT INFORMATION
  Report Type: Spontaneous
  Country: DE (occurrence: SK)
  Receive Date: 20130606
  Receipt Date: 20130620
  Transmission Date: 20140414
  Serious: Yes (Hospitalization)
  Sender: FDA-Public Use
  Company Number: SK-FRI-1000045717

PATIENT
  Age: 51 Year
  Sex: Female
  Weight: 37 kg

DRUGS (4)
  1. ROFLUMILAST [Suspect]
     Indication: CHRONIC OBSTRUCTIVE PULMONARY DISEASE
     Dosage: 250 MCG
     Route: 048
     Dates: start: 201201, end: 20130308
  2. SPIRIVA [Concomitant]
     Dosage: 18 MCG
     Route: 055
  3. MIFLONID [Concomitant]
     Indication: CHRONIC OBSTRUCTIVE PULMONARY DISEASE
     Dosage: 160 MCG
     Route: 055
  4. FORMOVENT [Concomitant]
     Indication: CHRONIC OBSTRUCTIVE PULMONARY DISEASE
     Dosage: 24 MCG
     Route: 055

REACTIONS (2)
  - Asthenia [Recovering/Resolving]
  - Medication error [Unknown]
